FAERS Safety Report 9053835 (Version 1)
Quarter: 2013Q1

REPORT INFORMATION
  Report Type: Spontaneous
  Country: US (occurrence: None)
  Receive Date: 20130201
  Receipt Date: 20130201
  Transmission Date: 20140127
  Serious: Yes (Other)
  Sender: FDA-Public Use
  Company Number: None

PATIENT
  Age: 57 Year
  Sex: Female
  Weight: 67.13 kg

DRUGS (1)
  1. MONISTAT [Suspect]
     Indication: FUNGAL INFECTION
     Dosage: 1 SUPPOSITORY 1 NIGHTLY/3 DAYS VAG
     Route: 067
     Dates: start: 20130125, end: 20130127

REACTIONS (3)
  - Vulvovaginal discomfort [None]
  - Vulvovaginal burning sensation [None]
  - Blister [None]
